FAERS Safety Report 16978270 (Version 2)
Quarter: 2020Q1

REPORT INFORMATION
  Report Type: Spontaneous
  Country: GB (occurrence: GB)
  Receive Date: 20191031
  Receipt Date: 20200107
  Transmission Date: 20200409
  Serious: Yes (Congenital Anomaly)
  Sender: FDA-Public Use
  Company Number: GB-ROCHE-2451276

PATIENT
  Age: 3 Month
  Sex: Male
  Weight: 1.12 kg

DRUGS (3)
  1. MYCOPHENOLATE MOFETIL. [Suspect]
     Active Substance: MYCOPHENOLATE MOFETIL
     Indication: PRODUCT USED FOR UNKNOWN INDICATION
     Dosage: MOTHER DOSE: 500MG ONCE DAILY
     Route: 064
  2. HYDROXYCHLOROQUINE SULFATE. [Concomitant]
     Active Substance: HYDROXYCHLOROQUINE SULFATE
     Route: 064
  3. VENLAFAXINE [Concomitant]
     Active Substance: VENLAFAXINE HYDROCHLORIDE
     Route: 064

REACTIONS (11)
  - Developmental delay [Not Recovered/Not Resolved]
  - Renal aplasia [Not Recovered/Not Resolved]
  - Inguinal hernia [Not Recovered/Not Resolved]
  - Cerebral haematoma [Not Recovered/Not Resolved]
  - Kidney duplex [Not Recovered/Not Resolved]
  - External ear disorder [Not Recovered/Not Resolved]
  - Foetal exposure during pregnancy [Unknown]
  - External auditory canal atresia [Not Recovered/Not Resolved]
  - Retinal coloboma [Not Recovered/Not Resolved]
  - Cerebral ventricle dilatation [Not Recovered/Not Resolved]
  - Iris coloboma [Not Recovered/Not Resolved]
